FAERS Safety Report 7762713-3 (Version None)
Quarter: 2011Q3

REPORT INFORMATION
  Report Type: 
  Country: None (occurrence: None)
  Receive Date: 20110920
  Receipt Date: 20110919
  Transmission Date: 20111222
  Serious: Yes (Other)
  Sender: FDA-Public Use
  Company Number: US-PFIZER INC-2011216184

PATIENT
  Sex: Female
  Weight: 65 kg

DRUGS (9)
  1. CHANTIX [Suspect]
     Dosage: 1 MG, 2X/DAY
     Route: 048
     Dates: start: 20110101
  2. OXYBUTYNIN [Concomitant]
     Dosage: 10 MG, 1X/DAY
  3. CHANTIX [Suspect]
     Dosage: 1 MG, UNK
     Route: 048
     Dates: start: 20110701, end: 20110101
  4. CITALOPRAM [Concomitant]
     Dosage: 40 MG, 1X/DAY
  5. DENOSUMAB [Concomitant]
     Indication: BONE DISORDER
     Dosage: UNK
  6. SPIRIVA [Concomitant]
     Dosage: UNK
  7. CHANTIX [Suspect]
     Indication: SMOKING CESSATION THERAPY
     Dosage: 0.5 MG, 1X/DAY
     Route: 048
     Dates: start: 20110627, end: 20110101
  8. VITAMIN D [Concomitant]
     Dosage: UNK, 1X/DAY
  9. CHANTIX [Suspect]
     Dosage: UNK
     Route: 048
     Dates: start: 20110704, end: 20110701

REACTIONS (4)
  - DYSGEUSIA [None]
  - WEIGHT INCREASED [None]
  - DROOLING [None]
  - DYSPNOEA [None]
